FAERS Safety Report 8573170-1 (Version None)
Quarter: 2012Q3

REPORT INFORMATION
  Report Type: 
  Country: None (occurrence: None)
  Receive Date: 20120806
  Receipt Date: 20120730
  Transmission Date: 20120928
  Serious: Yes (Hospitalization, Other)
  Sender: FDA-Public Use
  Company Number: US-PFIZER INC-2012119711

PATIENT
  Age: 52 Year
  Sex: Female
  Weight: 73 kg

DRUGS (13)
  1. HUMIRA [Concomitant]
     Indication: RHEUMATOID ARTHRITIS
     Dosage: 40 MG, ONCE EVERY TWO WEEK
  2. METHOTREXATE [Concomitant]
     Indication: RHEUMATOID ARTHRITIS
     Dosage: 2.5 MG, WEEKLY
  3. IBUPROFEN [Concomitant]
     Dosage: 800 MG, UNK
  4. CYCLOBENZAPRINE [Concomitant]
     Indication: INSOMNIA
     Dosage: UNK
  5. LYRICA [Suspect]
     Indication: NEUROPATHY PERIPHERAL
     Dosage: 50 MG, 2X/DAY
     Route: 048
     Dates: start: 20110101, end: 20110101
  6. LYRICA [Suspect]
     Indication: FIBROMYALGIA
     Dosage: 75MG IN MORNING AND 150MG AT NIGHT
     Route: 048
     Dates: start: 20110101
  7. HUMULIN R [Concomitant]
     Indication: DIABETES MELLITUS
     Dosage: UNK, 2X/DAY
  8. LOVASTATIN [Concomitant]
     Indication: CARDIAC DISORDER
     Dosage: 40 MG, UNK
  9. HUMULIN N [Concomitant]
     Indication: DIABETES MELLITUS
     Dosage: UNK
  10. FOLIC ACID [Concomitant]
     Indication: CARDIAC DISORDER
     Dosage: UNK
  11. ASPIRIN [Concomitant]
     Indication: CARDIAC DISORDER
     Dosage: UNK, 1X/DAY
  12. HYDROCODONE [Concomitant]
     Dosage: 10 MG, UNK
  13. METOPROLOL [Concomitant]
     Indication: CARDIAC DISORDER
     Dosage: 25 MG, 2X/DAY

REACTIONS (6)
  - LIMB DISCOMFORT [None]
  - DRUG INEFFECTIVE [None]
  - NASOPHARYNGITIS [None]
  - MYOCARDIAL INFARCTION [None]
  - PARANASAL SINUS HYPERSECRETION [None]
  - SINUS DISORDER [None]
